FAERS Safety Report 6265542-5 (Version None)
Quarter: 2009Q3

REPORT INFORMATION
  Report Type: 
  Country: None (occurrence: None)
  Receive Date: 20090709
  Receipt Date: 20090709
  Transmission Date: 20100115
  Serious: Yes (Other)
  Sender: FDA-Public Use
  Company Number: None

PATIENT
  Age: 33 Year
  Sex: Female
  Weight: 136.0791 kg

DRUGS (1)
  1. MIRENA [Suspect]

REACTIONS (9)
  - ABDOMINAL DISTENSION [None]
  - ACNE [None]
  - ARTHRALGIA [None]
  - ARTHROPATHY [None]
  - CRYING [None]
  - DIZZINESS [None]
  - FATIGUE [None]
  - MUSCULAR WEAKNESS [None]
  - WEIGHT ABNORMAL [None]
